FAERS Safety Report 7667984-X (Version None)
Quarter: 2011Q3

REPORT INFORMATION
  Report Type: 
  Country: None (occurrence: None)
  Receive Date: 20110808
  Receipt Date: 20110728
  Transmission Date: 20111222
  Serious: Yes (Hospitalization, Other)
  Sender: FDA-Public Use
  Company Number: JP-AMGEN-JPNSP2011037348

PATIENT
  Age: 73 Year
  Sex: Female

DRUGS (1)
  1. ENBREL [Suspect]
     Indication: RHEUMATOID ARTHRITIS
     Dosage: 25 MG, 2X/WEEK
     Dates: start: 20050701

REACTIONS (5)
  - BONE MARROW FAILURE [None]
  - LARGE GRANULAR LYMPHOCYTOSIS [None]
  - PLATELET COUNT DECREASED [None]
  - APLASTIC ANAEMIA [None]
  - WHITE BLOOD CELL COUNT DECREASED [None]
